FAERS Safety Report 12743135 (Version 1)
Quarter: 2016Q3

REPORT INFORMATION
  Report Type: Spontaneous
  Country: US (occurrence: US)
  Receive Date: 20160914
  Receipt Date: 20160914
  Transmission Date: 20161109
  Serious: No
  Sender: FDA-Public Use
  Company Number: US-SIGMA-TAU US-2016STPI000513

PATIENT

DRUGS (5)
  1. SOTALOL. [Concomitant]
     Active Substance: SOTALOL
  2. MATULANE [Suspect]
     Active Substance: PROCARBAZINE HYDROCHLORIDE
     Indication: HODGKIN^S DISEASE
     Dosage: 200 MG DAILY ON DAYS 1 TO 14
     Route: 048
     Dates: start: 20160516
  3. SIMVASTATIN. [Concomitant]
     Active Substance: SIMVASTATIN
  4. FLONAX [Concomitant]
  5. XARELTO [Concomitant]
     Active Substance: RIVAROXABAN

REACTIONS (2)
  - Asthenia [Unknown]
  - Dyspnoea [Unknown]

NARRATIVE: CASE EVENT DATE: 201607
